FAERS Safety Report 11899034 (Version 1)
Quarter: 2016Q1

REPORT INFORMATION
  Report Type: Spontaneous
  Country: US (occurrence: None)
  Receive Date: 20160107
  Receipt Date: 20160107
  Transmission Date: 20160526
  Serious: Yes (Hospitalization, Other)
  Sender: FDA-Public Use
  Company Number: None

PATIENT
  Age: 58 Year
  Sex: Female
  Weight: 104 kg

DRUGS (1)
  1. SOVALDI [Suspect]
     Active Substance: SOFOSBUVIR

REACTIONS (5)
  - Dyspnoea [None]
  - Dyspnoea paroxysmal nocturnal [None]
  - Orthopnoea [None]
  - Wheezing [None]
  - Ejection fraction decreased [None]

NARRATIVE: CASE EVENT DATE: 20141201
